FAERS Safety Report 6144816-2 (Version None)
Quarter: 2009Q2

REPORT INFORMATION
  Report Type: 
  Country: None (occurrence: None)
  Receive Date: 20090406
  Receipt Date: 20090324
  Transmission Date: 20091009
  Serious: Yes (Death, Hospitalization)
  Sender: FDA-Public Use
  Company Number: US-ELI_LILLY_AND_COMPANY-US200903006416

PATIENT
  Sex: Male

DRUGS (2)
  1. CYMBALTA [Suspect]
  2. OXYGEN [Concomitant]

REACTIONS (4)
  - CONSTIPATION [None]
  - DEATH [None]
  - FALL [None]
  - LOWER LIMB FRACTURE [None]
